FAERS Safety Report 17130915 (Version 1)
Quarter: 2019Q4

REPORT INFORMATION
  Report Type: Spontaneous
  Country: US (occurrence: US)
  Receive Date: 20191209
  Receipt Date: 20191209
  Transmission Date: 20200122
  Serious: Yes (Death)
  Sender: FDA-Public Use
  Company Number: US-ROCHE-2426714

PATIENT
  Age: 38 Year
  Sex: Female
  Weight: 53.6 kg

DRUGS (5)
  1. METHOHEXITAL [Suspect]
     Active Substance: METHOHEXITAL
     Indication: ANALGESIC THERAPY
     Dosage: DOSE: 50-60 MG
     Route: 065
  2. PENTAZOCINE [Suspect]
     Active Substance: PENTAZOCINE
     Indication: ANALGESIC THERAPY
     Route: 042
  3. DILANTIN [Concomitant]
     Active Substance: PHENYTOIN
     Indication: SEIZURE
  4. PHENOBARBITAL. [Concomitant]
     Active Substance: PHENOBARBITAL
     Indication: SEIZURE
  5. DIAZEPAM. [Suspect]
     Active Substance: DIAZEPAM
     Indication: ANALGESIC THERAPY
     Route: 042

REACTIONS (2)
  - Pregnancy [Unknown]
  - Overdose [Fatal]
